FAERS Safety Report 14789394 (Version 1)
Quarter: 2018Q2

REPORT INFORMATION
  Report Type: Report from Study
  Country: US (occurrence: US)
  Receive Date: 20180423
  Receipt Date: 20180423
  Transmission Date: 20180711
  Serious: Yes (Hospitalization)
  Sender: FDA-Public Use
  Company Number: US-ROCHE-2105759

PATIENT
  Age: 55 Year
  Sex: Female

DRUGS (2)
  1. HERCEPTIN [Suspect]
     Active Substance: TRASTUZUMAB
     Dosage: MOST RECENT DOSE: 27/OCT/2017
     Route: 042
     Dates: start: 20171006
  2. HERCEPTIN [Suspect]
     Active Substance: TRASTUZUMAB
     Indication: ENDOMETRIAL CANCER
     Dosage: ONGOING: NO
     Route: 042
     Dates: start: 20170915, end: 20171227

REACTIONS (5)
  - Chest pain [Unknown]
  - Oedema [Unknown]
  - Hypersensitivity [Unknown]
  - Dyspnoea [Unknown]
  - Rash [Unknown]

NARRATIVE: CASE EVENT DATE: 20170915
